FAERS Safety Report 21727130 (Version 1)
Quarter: 2022Q4

REPORT INFORMATION
  Report Type: Spontaneous
  Country: US (occurrence: None)
  Receive Date: 20221213
  Receipt Date: 20221213
  Transmission Date: 20230113
  Serious: Yes (Hospitalization, Disabling)
  Sender: FDA-Public Use
  Company Number: None

PATIENT
  Age: 52 Year
  Sex: Female

DRUGS (11)
  1. MYCOPHENOLIC ACID [Suspect]
     Active Substance: MYCOPHENOLIC ACID
     Indication: Renal transplant
     Dosage: FREQUENCY : TWICE A DAY;?
     Route: 048
     Dates: start: 20220325
  2. ATORVASTATIN [Concomitant]
     Active Substance: ATORVASTATIN
  3. CYCLOSPORINE [Concomitant]
     Active Substance: CYCLOSPORINE
  4. FAMOTIDINE [Concomitant]
     Active Substance: FAMOTIDINE
  5. FUROSEMIDE [Concomitant]
     Active Substance: FUROSEMIDE
  6. ICOSAPENT [Concomitant]
     Active Substance: ICOSAPENT
  7. INSULIN ASPART [Concomitant]
     Active Substance: INSULIN ASPART
  8. ISOSORBIDE [Concomitant]
     Active Substance: ISOSORBIDE
  9. METOPROLOL TARTRATE [Concomitant]
     Active Substance: METOPROLOL TARTRATE
  10. NOVOLOG [Concomitant]
     Active Substance: INSULIN ASPART
  11. PREDNISONE [Concomitant]
     Active Substance: PREDNISONE

REACTIONS (1)
  - Blood pressure increased [None]

NARRATIVE: CASE EVENT DATE: 20221205
